FAERS Safety Report 5525549-X (Version None)
Quarter: 2007Q4

REPORT INFORMATION
  Report Type: 
  Country: None (occurrence: None)
  Receive Date: 20071126
  Receipt Date: 20071120
  Transmission Date: 20080405
  Serious: Yes (Other)
  Sender: FDA-Public Use
  Company Number: B0485169A

PATIENT
  Age: 65 Year
  Sex: Female

DRUGS (2)
  1. DILATREND [Suspect]
     Indication: HYPERTENSION
     Route: 048
     Dates: start: 19920615
  2. IBUPROFEN [Suspect]
     Indication: DRUG USE FOR UNKNOWN INDICATION
     Route: 065

REACTIONS (5)
  - BONE MARROW FAILURE [None]
  - ERYTHROPENIA [None]
  - LEUKOPENIA [None]
  - PANCYTOPENIA [None]
  - THROMBOCYTOPENIA [None]
